FAERS Safety Report 6902257-1 (Version None)
Quarter: 2010Q3

REPORT INFORMATION
  Report Type: 
  Country: None (occurrence: None)
  Receive Date: 20100803
  Receipt Date: 20080502
  Transmission Date: 20110219
  Serious: Yes (Other)
  Sender: FDA-Public Use
  Company Number: US-PFIZER INC-2008022216

PATIENT
  Sex: Female
  Weight: 104.3 kg

DRUGS (5)
  1. LYRICA [Suspect]
     Indication: FIBROMYALGIA
     Route: 048
     Dates: start: 20071201
  2. LISINOPRIL [Concomitant]
     Route: 048
  3. LASIX [Concomitant]
     Route: 048
  4. ATENOLOL [Concomitant]
     Route: 048
  5. LOVASTATIN [Concomitant]
     Route: 048

REACTIONS (2)
  - PAIN [None]
  - WEIGHT INCREASED [None]
